FAERS Safety Report 25778924 (Version 2)
Quarter: 2025Q3

REPORT INFORMATION
  Report Type: Spontaneous
  Country: EU (occurrence: EU)
  Receive Date: 20250909
  Receipt Date: 20250910
  Transmission Date: 20251021
  Serious: Yes (Death, Hospitalization, Other)
  Sender: PFIZER
  Company Number: EU-PFIZER INC-PV202500107410

PATIENT
  Age: 68 Year
  Sex: Female

DRUGS (8)
  1. METHYLPREDNISOLONE SODIUM SUCCINATE [Suspect]
     Active Substance: METHYLPREDNISOLONE SODIUM SUCCINATE
     Indication: Antisynthetase syndrome
     Dosage: 1 G, DAILY
     Route: 040
     Dates: start: 202305
  2. METHYLPREDNISOLONE SODIUM SUCCINATE [Suspect]
     Active Substance: METHYLPREDNISOLONE SODIUM SUCCINATE
     Indication: Sjogren^s syndrome
     Dosage: 20 MG, DAILY
     Route: 040
     Dates: start: 202305
  3. HUMAN IMMUNOGLOBULIN G [Suspect]
     Active Substance: HUMAN IMMUNOGLOBULIN G
     Indication: Antisynthetase syndrome
     Dosage: 400 MG PER KG PER DAY FOR 5 DAYS
  4. HUMAN IMMUNOGLOBULIN G [Suspect]
     Active Substance: HUMAN IMMUNOGLOBULIN G
     Indication: Sjogren^s syndrome
  5. MYCOPHENOLATE MOFETIL [Suspect]
     Active Substance: MYCOPHENOLATE MOFETIL
     Indication: Antisynthetase syndrome
     Dates: start: 202305, end: 202307
  6. MYCOPHENOLATE MOFETIL [Suspect]
     Active Substance: MYCOPHENOLATE MOFETIL
     Indication: Sjogren^s syndrome
  7. NINTEDANIB [Suspect]
     Active Substance: NINTEDANIB
     Indication: Antisynthetase syndrome
     Dates: start: 202305
  8. NINTEDANIB [Suspect]
     Active Substance: NINTEDANIB
     Indication: Sjogren^s syndrome

REACTIONS (10)
  - Infection [Fatal]
  - Septic shock [Unknown]
  - Klebsiella infection [Unknown]
  - Cytomegalovirus infection [Unknown]
  - Herpes simplex [Unknown]
  - Candida infection [Unknown]
  - Stomatitis [Unknown]
  - Generalised oedema [Unknown]
  - Off label use [Unknown]
  - Drug effective for unapproved indication [Unknown]

NARRATIVE: CASE EVENT DATE: 20230101
